FAERS Safety Report 16305419 (Version 3)
Quarter: 2020Q4

REPORT INFORMATION
  Report Type: Spontaneous
  Country: US (occurrence: US)
  Receive Date: 20190513
  Receipt Date: 20201229
  Transmission Date: 20210113
  Serious: Yes (Disabling, Other)
  Sender: FDA-Public Use
  Company Number: US-ASTRAZENECA-2019SE64581

PATIENT
  Age: 13786 Day
  Sex: Female
  Weight: 104.3 kg

DRUGS (38)
  1. NEXIUM [Suspect]
     Active Substance: ESOMEPRAZOLE MAGNESIUM
     Route: 048
     Dates: start: 200806, end: 201711
  2. PANTOPRAZOLE [Suspect]
     Active Substance: PANTOPRAZOLE
     Indication: GASTROOESOPHAGEAL REFLUX DISEASE
     Dosage: GENERIC
     Route: 065
     Dates: start: 20130318, end: 20130418
  3. PREVACID [Suspect]
     Active Substance: LANSOPRAZOLE
     Indication: GASTROOESOPHAGEAL REFLUX DISEASE
     Route: 065
     Dates: start: 200601, end: 200612
  4. BETAMETHASONE. [Concomitant]
     Active Substance: BETAMETHASONE
  5. CLOBETASOL [Concomitant]
     Active Substance: CLOBETASOL
  6. CEPHALEXIN. [Concomitant]
     Active Substance: CEPHALEXIN
  7. ZANTAC [Concomitant]
     Active Substance: RANITIDINE HYDROCHLORIDE
     Indication: GASTROOESOPHAGEAL REFLUX DISEASE
     Dates: start: 2008
  8. PREDNISONE. [Concomitant]
     Active Substance: PREDNISONE
  9. DICYCLOMINE [Concomitant]
     Active Substance: DICYCLOMINE HYDROCHLORIDE
  10. PRILOSEC [Suspect]
     Active Substance: OMEPRAZOLE MAGNESIUM
     Indication: GASTROOESOPHAGEAL REFLUX DISEASE
     Route: 048
     Dates: start: 200806, end: 201711
  11. BENADRYL [Concomitant]
     Active Substance: DIPHENHYDRAMINE HYDROCHLORIDE
     Indication: DIALYSIS
     Dates: start: 2008, end: 2018
  12. AMOXICILLIN. [Concomitant]
     Active Substance: AMOXICILLIN
  13. PRILOSEC OTC [Suspect]
     Active Substance: OMEPRAZOLE MAGNESIUM
     Indication: GASTROOESOPHAGEAL REFLUX DISEASE
     Route: 048
     Dates: start: 200801, end: 201412
  14. TUMS [Concomitant]
     Active Substance: CALCIUM CARBONATE
     Dates: start: 2010
  15. HYDROCODONE [Concomitant]
     Active Substance: HYDROCODONE
  16. AZITHROMYCIN ANHYDROUS. [Concomitant]
     Active Substance: AZITHROMYCIN ANHYDROUS
  17. MEDROXYPROGESTERONE [Concomitant]
     Active Substance: MEDROXYPROGESTERONE
  18. VALGANCICLOVIR. [Concomitant]
     Active Substance: VALGANCICLOVIR
  19. PRILOSEC [Suspect]
     Active Substance: OMEPRAZOLE MAGNESIUM
     Indication: GASTROOESOPHAGEAL REFLUX DISEASE
     Dosage: GENERIC
     Route: 065
     Dates: start: 20150708, end: 20151006
  20. ACETAMINOPHEN. [Concomitant]
     Active Substance: ACETAMINOPHEN
     Indication: BACK PAIN
     Dates: start: 2015
  21. PREDNISONE. [Concomitant]
     Active Substance: PREDNISONE
  22. CALCIUM ACETATE. [Concomitant]
     Active Substance: CALCIUM ACETATE
  23. CALCITRIOL. [Concomitant]
     Active Substance: CALCITRIOL
  24. PRILOSEC [Suspect]
     Active Substance: OMEPRAZOLE MAGNESIUM
     Indication: GASTROOESOPHAGEAL REFLUX DISEASE
     Dosage: GENERIC
     Route: 065
     Dates: start: 20140131, end: 20140503
  25. FAMOTIDINE. [Concomitant]
     Active Substance: FAMOTIDINE
     Indication: GASTROOESOPHAGEAL REFLUX DISEASE
     Dates: start: 2013
  26. ROLAIDS [Concomitant]
     Active Substance: CALCIUM CARBONATE\MAGNESIUM HYDROXIDE
     Dates: start: 2010
  27. VALSARTAN. [Concomitant]
     Active Substance: VALSARTAN
  28. ONDANSETRON [Concomitant]
     Active Substance: ONDANSETRON
  29. DIOVAN [Concomitant]
     Active Substance: VALSARTAN
  30. LISINOPRIL. [Concomitant]
     Active Substance: LISINOPRIL
  31. CALCIUM ACETATE. [Concomitant]
     Active Substance: CALCIUM ACETATE
  32. PRILOSEC [Suspect]
     Active Substance: OMEPRAZOLE MAGNESIUM
     Indication: GASTROOESOPHAGEAL REFLUX DISEASE
     Dosage: GENERIC
     Route: 065
     Dates: start: 20080308, end: 20130106
  33. GABAPENTIN. [Concomitant]
     Active Substance: GABAPENTIN
  34. METOPROLOL TARTRATE. [Concomitant]
     Active Substance: METOPROLOL TARTRATE
  35. PREVACID 24 HR [Suspect]
     Active Substance: LANSOPRAZOLE
     Route: 065
  36. AMLODIPINE [Concomitant]
     Active Substance: AMLODIPINE BESYLATE
  37. LIDOCAINE. [Concomitant]
     Active Substance: LIDOCAINE
  38. TACROLIMUS. [Concomitant]
     Active Substance: TACROLIMUS

REACTIONS (10)
  - Acute kidney injury [Not Recovered/Not Resolved]
  - Renal failure [Unknown]
  - Glomerulonephritis membranous [Unknown]
  - Panic attack [Unknown]
  - Nephrogenic anaemia [Unknown]
  - Hyperparathyroidism secondary [Unknown]
  - Anxiety [Unknown]
  - Nephrotic syndrome [Not Recovered/Not Resolved]
  - Chronic kidney disease [Not Recovered/Not Resolved]
  - End stage renal disease [Not Recovered/Not Resolved]

NARRATIVE: CASE EVENT DATE: 20110629
